FAERS Safety Report 19110806 (Version 1)
Quarter: 2021Q2

REPORT INFORMATION
  Report Type: Spontaneous
  Country: FR (occurrence: FR)
  Receive Date: 20210409
  Receipt Date: 20210409
  Transmission Date: 20210717
  Serious: Yes (Other)
  Sender: FDA-Public Use
  Company Number: FR-TEVA-2021-FR-1897242

PATIENT
  Age: 78 Year
  Sex: Female
  Weight: 45 kg

DRUGS (7)
  1. DIGOXIN. [Suspect]
     Active Substance: DIGOXIN
     Dosage: 250 MICROGRAM DAILY;
     Route: 065
  2. ASPIRINE [Suspect]
     Active Substance: ASPIRIN
     Dosage: 160 MILLIGRAM DAILY;
     Route: 065
  3. DILTIAZEM LP [Suspect]
     Active Substance: DILTIAZEM HYDROCHLORIDE
     Dosage: 400 MILLIGRAM DAILY; 200MG AT TWO DOSAGE FORMS PER DAY
     Route: 065
  4. PERINDOPRIL/INDAPAMIDE [Suspect]
     Active Substance: INDAPAMIDE\PERINDOPRIL
     Dosage: 2.5 MG/0.625 MG
     Route: 065
  5. OMEPRAZOLE. [Suspect]
     Active Substance: OMEPRAZOLE
     Dosage: 20 MILLIGRAM DAILY;
     Route: 065
  6. LORAZEPAM. [Suspect]
     Active Substance: LORAZEPAM
     Dosage: 2.5 MILLIGRAM DAILY; TAKE IN THE EVENING
     Route: 065
  7. DICLOFENAC [Suspect]
     Active Substance: DICLOFENAC
     Dosage: 50 MILLIGRAM DAILY;
     Route: 065

REACTIONS (9)
  - Protein total [Unknown]
  - Asthenia [Unknown]
  - Fall [Unknown]
  - Off label use [Unknown]
  - Cardiac failure [Unknown]
  - Heart rate irregular [Unknown]
  - Hypotension [Unknown]
  - Blood creatinine [Unknown]
  - Dyspnoea [Unknown]
